FAERS Safety Report 12723081 (Version 1)
Quarter: 2016Q3

REPORT INFORMATION
  Report Type: Spontaneous
  Country: ES (occurrence: ES)
  Receive Date: 20160908
  Receipt Date: 20160908
  Transmission Date: 20161109
  Serious: Yes (Other)
  Sender: FDA-Public Use
  Company Number: ES-009507513-1608ESP014542

PATIENT
  Age: 63 Year
  Sex: Female

DRUGS (2)
  1. CELESTONE CRONODOSE [Suspect]
     Active Substance: BETAMETHASONE
     Indication: NECK PAIN
     Dosage: 1 VIAL FROM 2 ML
     Route: 030
     Dates: start: 20160808, end: 20160808
  2. DIPYRONE [Suspect]
     Active Substance: DIPYRONE
     Indication: NECK PAIN
     Dosage: AMPOLLA 2G/5ML
     Route: 030
     Dates: start: 20160808, end: 20160808

REACTIONS (3)
  - Hyperhidrosis [Recovered/Resolved]
  - Dyspnoea [Recovered/Resolved]
  - Dysarthria [Recovered/Resolved]

NARRATIVE: CASE EVENT DATE: 20160808
